FAERS Safety Report 18441871 (Version 1)
Quarter: 2020Q4

REPORT INFORMATION
  Report Type: Spontaneous
  Country: US (occurrence: US)
  Receive Date: 20201029
  Receipt Date: 20201029
  Transmission Date: 20210114
  Serious: Yes (Other)
  Sender: FDA-Public Use
  Company Number: US-PURDUE-USA-2020-0169420

PATIENT

DRUGS (2)
  1. OXYCODONE HYDROCHLORIDE (SIMILAR TO NDA 22-272) [Suspect]
     Active Substance: OXYCODONE HYDROCHLORIDE
     Indication: PAIN
     Dosage: UNK
     Route: 048
  2. OXYCONTIN [Suspect]
     Active Substance: OXYCODONE HYDROCHLORIDE
     Indication: PAIN
     Dosage: UNK
     Route: 048

REACTIONS (8)
  - Adrenal insufficiency [Unknown]
  - Depression [Unknown]
  - Idiopathic intracranial hypertension [Unknown]
  - Headache [Unknown]
  - Anxiety [Unknown]
  - Cholecystectomy [Unknown]
  - Emotional distress [Unknown]
  - Back pain [Unknown]

NARRATIVE: CASE EVENT DATE: 2019
